FAERS Safety Report 12198609 (Version 1)
Quarter: 2016Q1

REPORT INFORMATION
  Report Type: Spontaneous
  Country: US (occurrence: None)
  Receive Date: 20160321
  Receipt Date: 20160321
  Transmission Date: 20160526
  Serious: No
  Sender: FDA-Public Use
  Company Number: None

PATIENT
  Age: 62 Year
  Sex: Female

DRUGS (1)
  1. HUMIRA [Suspect]
     Active Substance: ADALIMUMAB
     Indication: PSORIATIC ARTHROPATHY
     Dosage: 40MG EVERY 2 WEEKS SC
     Route: 058
     Dates: start: 20160102, end: 20160315

REACTIONS (4)
  - Acne [None]
  - Erythema multiforme [None]
  - Rash [None]
  - Headache [None]

NARRATIVE: CASE EVENT DATE: 20160315
